FAERS Safety Report 7237230-X (Version None)
Quarter: 2011Q1

REPORT INFORMATION
  Report Type: 
  Country: None (occurrence: None)
  Receive Date: 20110121
  Receipt Date: 20100209
  Transmission Date: 20110831
  Serious: Yes (Other)
  Sender: FDA-Public Use
  Company Number: SE-JNJFOC-20090501872

PATIENT
  Age: 31 Year
  Sex: Female

DRUGS (3)
  1. IPREN [Suspect]
     Route: 048
  2. IPREN [Suspect]
     Indication: DYSMENORRHOEA
     Route: 048
  3. HERBAL MEDICATION (NOS) [Concomitant]

REACTIONS (2)
  - RETAINED PLACENTA OR MEMBRANES [None]
  - DRUG EXPOSURE DURING PREGNANCY [None]
